FAERS Safety Report 17151847 (Version 1)
Quarter: 2019Q4

REPORT INFORMATION
  Report Type: Spontaneous
  Country: SE (occurrence: SE)
  Receive Date: 20191213
  Receipt Date: 20191213
  Transmission Date: 20200122
  Serious: Yes (Hospitalization)
  Sender: FDA-Public Use
  Company Number: SE-PFIZER INC-2019534639

PATIENT
  Age: 28 Year
  Sex: Female
  Weight: 65.5 kg

DRUGS (6)
  1. THERALEN [Suspect]
     Active Substance: TRIMEPRAZINE
     Dosage: 400 MG, UNK
     Dates: start: 20181005, end: 20181005
  2. PROPAVAN [Suspect]
     Active Substance: PROPIOMAZINE
     Dosage: 300 MG, UNK
     Route: 048
     Dates: start: 20181005, end: 20181005
  3. PANODIL [Suspect]
     Active Substance: ACETAMINOPHEN
     Dosage: 9000 MG (137 MG/KG), UNK
     Route: 048
     Dates: start: 20181005, end: 20181005
  4. ZOPICLONE [Suspect]
     Active Substance: ZOPICLONE
     Dosage: 30 MG, UNK
     Route: 048
     Dates: start: 20181005, end: 20181005
  5. RISPERDAL [Suspect]
     Active Substance: RISPERIDONE
     Dosage: 12 MG, UNK
     Route: 048
     Dates: start: 20181005, end: 20181005
  6. SERTRALINE HCL [Suspect]
     Active Substance: SERTRALINE HYDROCHLORIDE
     Dosage: 400 MG, UNK
     Route: 048
     Dates: start: 20181005, end: 20181005

REACTIONS (7)
  - Akathisia [Unknown]
  - Intentional self-injury [Unknown]
  - Dysarthria [Unknown]
  - Tachycardia [Unknown]
  - Intentional overdose [Unknown]
  - Fatigue [Unknown]
  - Electrocardiogram QT prolonged [Unknown]

NARRATIVE: CASE EVENT DATE: 20181005
